FAERS Safety Report 7567861-9 (Version None)
Quarter: 2011Q2

REPORT INFORMATION
  Report Type: 
  Country: None (occurrence: None)
  Receive Date: 20110623
  Receipt Date: 20110613
  Transmission Date: 20111010
  Serious: Yes (Other)
  Sender: FDA-Public Use
  Company Number: TN-SANOFI-AVENTIS-2011SA037700

PATIENT

DRUGS (5)
  1. ALLOPURINOL [Suspect]
     Route: 065
  2. SULFASALAZINE [Suspect]
     Route: 065
  3. CEFOTAXIME [Suspect]
     Route: 065
  4. TERBINAFINE HCL [Suspect]
     Route: 065
  5. CARBAMAZEPINE [Suspect]
     Route: 065

REACTIONS (6)
  - WHITE BLOOD CELL COUNT INCREASED [None]
  - PYREXIA [None]
  - RASH [None]
  - DRUG RASH WITH EOSINOPHILIA AND SYSTEMIC SYMPTOMS [None]
  - EOSINOPHILIA [None]
  - LIVER INJURY [None]
